FAERS Safety Report 9327921 (Version 1)
Quarter: 2013Q2

REPORT INFORMATION
  Report Type: Spontaneous
  Country: US (occurrence: US)
  Receive Date: 20130604
  Receipt Date: 20130604
  Transmission Date: 20140414
  Serious: No
  Sender: FDA-Public Use
  Company Number: US-009507513-1305USA017496

PATIENT
  Sex: Male

DRUGS (1)
  1. PEGINTRON [Suspect]
     Dosage: 150 MCG 1STANDARD DOSE OF 1, 0.5 ML, QW
     Route: 058
     Dates: start: 20130425

REACTIONS (2)
  - Product quality issue [Unknown]
  - Incorrect dose administered [Unknown]
